FAERS Safety Report 11107781 (Version 6)
Quarter: 2015Q3

REPORT INFORMATION
  Report Type: Report from Study
  Country: KR (occurrence: KR)
  Receive Date: 20150512
  Receipt Date: 20150716
  Transmission Date: 20151125
  Serious: Yes (Hospitalization)
  Sender: FDA-Public Use
  Company Number: KR-009507513-1504KOR016797

PATIENT
  Age: 4 Year
  Sex: Male
  Weight: 15.4 kg

DRUGS (22)
  1. ACETAMINOPHEN. [Concomitant]
     Active Substance: ACETAMINOPHEN
     Indication: PYREXIA
     Dosage: 5.3 ML, ONCE
     Route: 042
     Dates: start: 20150403, end: 20150403
  2. KYTRIL [Concomitant]
     Active Substance: GRANISETRON HYDROCHLORIDE
     Indication: PROPHYLAXIS OF NAUSEA AND VOMITING
     Dosage: 1 MG, QD
     Route: 042
     Dates: start: 20150331, end: 20150404
  3. IFOSFAMIDE. [Suspect]
     Active Substance: IFOSFAMIDE
     Indication: CHEMOTHERAPY
     Dosage: 830 MG, QD
     Route: 042
     Dates: start: 20150505, end: 20150506
  4. UROMITEXAN [Concomitant]
     Active Substance: MESNA
     Indication: PROPHYLAXIS
     Dosage: 300 MG, QID
     Route: 042
     Dates: start: 20150331, end: 20150404
  5. DEFEROXAMINE [Concomitant]
     Active Substance: DEFEROXAMINE\DEFEROXAMINE MESYLATE
     Indication: CHEMOTHERAPY
     Dosage: 1500 MG, QD
     Route: 042
     Dates: start: 20150331, end: 20150404
  6. BLOOD CELLS, RED [Concomitant]
     Active Substance: HUMAN BLOOD CELLS
     Dosage: 160 ML, ONCE
     Route: 042
     Dates: start: 20150414, end: 20150414
  7. FOSAPREPITANT DIMEGLUMINE [Suspect]
     Active Substance: FOSAPREPITANT DIMEGLUMINE
     Indication: PROPHYLAXIS OF NAUSEA AND VOMITING
     Dosage: UNK
     Route: 042
     Dates: start: 20120303, end: 20150303
  8. NEOPLATIN [Concomitant]
     Active Substance: CISPLATIN
     Indication: CHEMOTHERAPY
     Dosage: 240 MG, QD
     Route: 042
     Dates: start: 20150331, end: 20150401
  9. ETOPOSIDE. [Concomitant]
     Active Substance: ETOPOSIDE
     Indication: CHEMOTHERAPY
     Dosage: 68 MG, QD
     Route: 042
     Dates: start: 20150331, end: 20150403
  10. MEQUITAZINE [Concomitant]
     Active Substance: MEQUITAZINE
     Indication: RHINORRHOEA
     Dosage: 3.6 ML, BID
     Route: 048
     Dates: start: 20150326, end: 20150401
  11. FOSAPREPITANT DIMEGLUMINE [Suspect]
     Active Substance: FOSAPREPITANT DIMEGLUMINE
     Dosage: UNK
     Route: 042
     Dates: start: 20150505, end: 20150505
  12. HOLOXAN [Suspect]
     Active Substance: IFOSFAMIDE
     Indication: CHEMOTHERAPY
     Dosage: 810 MG, QD
     Route: 042
     Dates: start: 20150331, end: 20150404
  13. FUROSEMIDE. [Concomitant]
     Active Substance: FUROSEMIDE
     Indication: DIURETIC THERAPY
     Dosage: 15 MG, ONCE
     Route: 042
     Dates: start: 20150409, end: 20150409
  14. PLATELETS, PHERESIS [Concomitant]
     Indication: ANAEMIA
     Dosage: 320 ML, ONCE
     Route: 042
     Dates: start: 20150414, end: 20150414
  15. CHLORPHENIRAMINE MALEATE. [Concomitant]
     Active Substance: CHLORPHENIRAMINE MALEATE
     Indication: ALLERGY PROPHYLAXIS
     Dosage: 1.6 ML, BID
     Route: 042
     Dates: start: 20150414, end: 20150414
  16. SEPTRIN [Concomitant]
     Active Substance: SULFAMETHOXAZOLE\TRIMETHOPRIM
     Indication: INFECTION PROPHYLAXIS
     Dosage: 480 MG, BID
     Route: 048
     Dates: start: 20150326, end: 20150406
  17. FOSAPREPITANT DIMEGLUMINE [Suspect]
     Active Substance: FOSAPREPITANT DIMEGLUMINE
     Dosage: UNK
     Route: 042
     Dates: start: 20150331, end: 20150331
  18. FLUCONAZOLE. [Concomitant]
     Active Substance: FLUCONAZOLE
     Indication: ANTIFUNGAL PROPHYLAXIS
     Dosage: 5 ML, QD
     Route: 048
     Dates: start: 20150409, end: 20150413
  19. FUROSEMIDE. [Concomitant]
     Active Substance: FUROSEMIDE
     Dosage: 15 MG, ONCE
     Route: 042
     Dates: start: 20150414, end: 20150414
  20. FILGRASTIM [Concomitant]
     Active Substance: FILGRASTIM
     Indication: NEUTROPENIA
     Dosage: 75 MICROGRAM, QD
     Route: 058
     Dates: start: 20150409, end: 20150414
  21. BLOOD CELLS, RED [Concomitant]
     Active Substance: HUMAN BLOOD CELLS
     Indication: ANAEMIA
     Dosage: 160 ML, ONCE
     Route: 042
     Dates: start: 20150409, end: 20150409
  22. CHLORPHENIRAMINE MALEATE. [Concomitant]
     Active Substance: CHLORPHENIRAMINE MALEATE
     Dosage: 1.6 ML, QD
     Route: 042
     Dates: start: 20150331, end: 20150403

REACTIONS (2)
  - Seizure [Recovered/Resolved]
  - Febrile neutropenia [Recovered/Resolved]

NARRATIVE: CASE EVENT DATE: 20150414
